FAERS Safety Report 14116182 (Version 1)
Quarter: 2017Q4

REPORT INFORMATION
  Report Type: Spontaneous
  Country: DE (occurrence: DE)
  Receive Date: 20171023
  Receipt Date: 20171023
  Transmission Date: 20180321
  Serious: Yes (Other)
  Sender: FDA-Public Use
  Company Number: DE-TEVA-816726GER

PATIENT
  Sex: Male

DRUGS (3)
  1. FINASTERID [Suspect]
     Active Substance: FINASTERIDE
     Dates: start: 2013
  2. IRBESARTAN 300MG TABLET [Suspect]
     Active Substance: IRBESARTAN
  3. XARELTO [Suspect]
     Active Substance: RIVAROXABAN

REACTIONS (2)
  - Mineral metabolism disorder [Unknown]
  - Gamma-glutamyltransferase increased [Unknown]
